FAERS Safety Report 20936767 (Version 1)
Quarter: 2022Q2

REPORT INFORMATION
  Report Type: Spontaneous
  Country: JP (occurrence: JP)
  Receive Date: 20220609
  Receipt Date: 20220609
  Transmission Date: 20220720
  Serious: Yes (Hospitalization, Other)
  Sender: FDA-Public Use
  Company Number: JP-ONO-2022JP015503

PATIENT
  Age: 8 Decade
  Sex: Female

DRUGS (2)
  1. KYPROLIS [Suspect]
     Active Substance: CARFILZOMIB
     Indication: Plasma cell myeloma
     Dosage: UNK
     Route: 041
  2. REVLIMID [Concomitant]
     Active Substance: LENALIDOMIDE
     Dosage: UNK
     Route: 065

REACTIONS (7)
  - Facial bones fracture [Unknown]
  - Pelvic fracture [Unknown]
  - Pancreatitis [Unknown]
  - Tongue disorder [Unknown]
  - Fall [Unknown]
  - Alopecia [Unknown]
  - Rib fracture [Unknown]
